FAERS Safety Report 5315061-5 (Version None)
Quarter: 2007Q2

REPORT INFORMATION
  Report Type: 
  Country: None (occurrence: None)
  Receive Date: 20070502
  Receipt Date: 20070423
  Transmission Date: 20071010
  Serious: Yes (Death, Hospitalization)
  Sender: FDA-Public Use
  Company Number: DE-GENENTECH-237423

PATIENT
  Sex: Female
  Weight: 72 kg

DRUGS (8)
  1. RITUXIMAB [Suspect]
     Indication: RHEUMATOID ARTHRITIS
     Dosage: 1000 MG, SINGLE
     Route: 042
     Dates: start: 20070213
  2. INFLIXIMAB [Suspect]
     Indication: RHEUMATOID ARTHRITIS
     Dosage: 300 MG, Q2M
     Route: 042
     Dates: start: 20050901
  3. METHOTREXATE [Concomitant]
     Indication: RHEUMATOID ARTHRITIS
     Dosage: 15 MG, 1/WEEK
     Route: 048
     Dates: start: 20070111
  4. MELYSDON (UNK INGREDIENTS) [Concomitant]
     Indication: RHEUMATOID ARTHRITIS
     Dosage: 8 MG, UNK
     Route: 048
     Dates: start: 20061101
  5. TERIPARATIDE [Concomitant]
     Indication: OSTEOPOROSIS
     Dosage: 0.75 MG, UNK
     Route: 058
     Dates: start: 20051028
  6. CALCIUM D3 [Concomitant]
     Indication: OSTEOPOROSIS
     Dosage: 1 UNK, UNK
     Dates: start: 20061025
  7. MOBLOC [Concomitant]
     Indication: DRUG USE FOR UNKNOWN INDICATION
  8. RAMIPRIL [Concomitant]
     Indication: DRUG USE FOR UNKNOWN INDICATION

REACTIONS (2)
  - MULTI-ORGAN FAILURE [None]
  - STAPHYLOCOCCAL SEPSIS [None]
